FAERS Safety Report 5718354-2 (Version None)
Quarter: 2008Q2

REPORT INFORMATION
  Report Type: 
  Country: None (occurrence: None)
  Receive Date: 20080425
  Receipt Date: 20070627
  Transmission Date: 20081010
  Serious: No
  Sender: FDA-Public Use
  Company Number: A0660329A

PATIENT
  Age: 52 Year
  Sex: Male

DRUGS (2)
  1. DEXEDRINE [Suspect]
     Indication: ATTENTION DEFICIT/HYPERACTIVITY DISORDER
     Dosage: 5MG PER DAY
     Route: 048
  2. DEXEDRINE [Suspect]
     Dosage: 2.5MG PER DAY
     Route: 048

REACTIONS (3)
  - DRUG INEFFECTIVE [None]
  - HYPERSOMNIA [None]
  - INSOMNIA [None]
